FAERS Safety Report 22066869 (Version 1)
Quarter: 2023Q1

REPORT INFORMATION
  Report Type: Spontaneous
  Country: ES (occurrence: ES)
  Receive Date: 20230306
  Receipt Date: 20230306
  Transmission Date: 20230417
  Serious: Yes (Hospitalization)
  Sender: FDA-Public Use
  Company Number: ES-BEH-2023156125

PATIENT
  Age: 50 Year
  Sex: Female

DRUGS (2)
  1. HAEMATE P [Suspect]
     Active Substance: ANTIHEMOPHILIC FACTOR HUMAN
     Indication: Von Willebrand^s disease
     Dosage: UNK, PRN
     Route: 065
  2. LANREOTIDE ACETATE [Concomitant]
     Active Substance: LANREOTIDE ACETATE

REACTIONS (4)
  - Small intestinal haemorrhage [Unknown]
  - Melaena [Unknown]
  - Haemorrhage [Unknown]
  - Coagulation factor VIII level increased [Unknown]

NARRATIVE: CASE EVENT DATE: 20221201
